FAERS Safety Report 9667450 (Version 1)
Quarter: 2013Q4

REPORT INFORMATION
  Report Type: Spontaneous
  Country: US (occurrence: US)
  Receive Date: 20131101
  Receipt Date: 20131101
  Transmission Date: 20140711
  Serious: Yes (Other)
  Sender: FDA-Public Use
  Company Number: US-SAVIENT-2012S1000051

PATIENT
  Age: 70 Year
  Sex: Female

DRUGS (11)
  1. KRYSTEXXA INJECTION [Suspect]
     Indication: GOUT
     Route: 042
     Dates: start: 20120509, end: 20120509
  2. KRYSTEXXA INJECTION [Suspect]
     Indication: GOUT
     Route: 042
     Dates: start: 20120530, end: 20120530
  3. HYDROCORTISONE [Concomitant]
     Indication: PREMEDICATION
     Route: 042
     Dates: start: 20120530, end: 20120530
  4. HYDROCORTISONE [Concomitant]
     Indication: PREMEDICATION
     Route: 042
     Dates: start: 20120509, end: 20120509
  5. BENADRYL /01563701/ [Concomitant]
     Indication: PREMEDICATION
     Route: 048
     Dates: start: 20120530, end: 20120530
  6. BENADRYL /01563701/ [Concomitant]
     Indication: PREMEDICATION
     Route: 048
     Dates: start: 20120509, end: 20120509
  7. PREDNISONE [Concomitant]
     Indication: GOUT
  8. NAPROXEN [Concomitant]
     Indication: GOUT
  9. METFORMIN [Concomitant]
     Indication: TYPE 2 DIABETES MELLITUS
  10. GLIPIZIDE [Concomitant]
     Indication: TYPE 2 DIABETES MELLITUS
  11. TORSEMIDE [Concomitant]
     Indication: PRODUCT USED FOR UNKNOWN INDICATION

REACTIONS (3)
  - Anaphylactic reaction [Recovered/Resolved]
  - Gout [Unknown]
  - Therapeutic response decreased [Unknown]
